FAERS Safety Report 7296597-7 (Version None)
Quarter: 2011Q1

REPORT INFORMATION
  Report Type: 
  Country: None (occurrence: None)
  Receive Date: 20110216
  Receipt Date: 20110207
  Transmission Date: 20110831
  Serious: Yes (Disabling, Other)
  Sender: FDA-Public Use
  Company Number: PHHY2010US66297

PATIENT
  Sex: Female

DRUGS (21)
  1. RECLAST [Suspect]
     Indication: OSTEOPOROSIS
     Dosage: 5 MG
     Route: 042
     Dates: start: 20100806
  2. PENICILLIN [Concomitant]
     Indication: RASH
  3. HYDROCHLOROTHIAZIDE [Concomitant]
  4. KEFLEX [Concomitant]
  5. PROTONIX [Concomitant]
  6. CELEBREX [Concomitant]
     Indication: OEDEMA
  7. TETRACYCLINE [Concomitant]
  8. DETROL [Concomitant]
     Indication: DIZZINESS
  9. ACIPHEX [Concomitant]
  10. CEPHALOSPORINES [Concomitant]
     Indication: URTICARIA
  11. VITAMIN D [Concomitant]
  12. MORPHINE SULFATE [Concomitant]
  13. LISINOPRIL [Concomitant]
  14. LASIX [Concomitant]
  15. POTASSIUM [Concomitant]
  16. COMPAZINE [Concomitant]
  17. CALCIUM [Concomitant]
  18. INDERAL LA [Concomitant]
  19. BEXTRA [Concomitant]
  20. AMPICILLIN [Concomitant]
  21. DILANTIN [Concomitant]

REACTIONS (13)
  - BONE PAIN [None]
  - PYREXIA [None]
  - ARTHRALGIA [None]
  - MYALGIA [None]
  - MUSCULOSKELETAL STIFFNESS [None]
  - RED BLOOD CELL SEDIMENTATION RATE INCREASED [None]
  - BLOOD SODIUM DECREASED [None]
  - BLOOD CHLORIDE DECREASED [None]
  - MUSCULOSKELETAL PAIN [None]
  - C-REACTIVE PROTEIN INCREASED [None]
  - BLOOD CALCIUM DECREASED [None]
  - MOVEMENT DISORDER [None]
  - PAIN [None]
